FAERS Safety Report 6476847-7 (Version None)
Quarter: 2009Q4

REPORT INFORMATION
  Report Type: 
  Country: None (occurrence: None)
  Receive Date: 20091204
  Receipt Date: 20091204
  Transmission Date: 20100525
  Serious: Yes (Other)
  Sender: FDA-Public Use
  Company Number: None

PATIENT
  Age: 55 Year
  Sex: Female
  Weight: 70.3075 kg

DRUGS (1)
  1. RESTASIS [Suspect]
     Indication: DRY EYE
     Dates: start: 20090801, end: 20091015

REACTIONS (1)
  - SINUS DISORDER [None]
